FAERS Safety Report 5573056-0 (Version None)
Quarter: 2007Q4

REPORT INFORMATION
  Report Type: 
  Country: None (occurrence: None)
  Receive Date: 20071224
  Receipt Date: 20071218
  Transmission Date: 20080405
  Serious: Yes (Hospitalization)
  Sender: FDA-Public Use
  Company Number: GB-ROCHE-538091

PATIENT
  Age: 42 Year
  Sex: Female

DRUGS (4)
  1. GRANISETRON  HCL [Suspect]
     Indication: DRUG USE FOR UNKNOWN INDICATION
     Route: 065
  2. NEULASTA [Suspect]
     Indication: DRUG USE FOR UNKNOWN INDICATION
     Route: 065
  3. PACLITAXEL [Suspect]
     Indication: BREAST CANCER
     Route: 042
  4. CYCLOPHOSPHAMIDE [Concomitant]

REACTIONS (2)
  - BLEPHARITIS [None]
  - DYSPNOEA [None]
